FAERS Safety Report 9791203 (Version 2)
Quarter: 2016Q2

REPORT INFORMATION
  Report Type: Report from Study
  Country: US (occurrence: US)
  Receive Date: 20131231
  Receipt Date: 20160603
  Transmission Date: 20160815
  Serious: Yes (Other)
  Sender: FDA-Public Use
  Company Number: US-ROCHE-1327601

PATIENT
  Sex: Male

DRUGS (3)
  1. LUCENTIS [Suspect]
     Active Substance: RANIBIZUMAB
     Indication: RETINAL DISORDER
     Route: 050
  2. METOPROLOL TARTRATE. [Concomitant]
     Active Substance: METOPROLOL TARTRATE
     Indication: HEART RATE INCREASED
     Route: 048
  3. LUCENTIS [Suspect]
     Active Substance: RANIBIZUMAB
     Indication: HEREDITARY RETINAL DYSTROPHY
     Dosage: RIGHT EYE (FROM 05 DEC 2013) AND IN LEFT EYE (FROM 06 DEC 2013).
     Route: 050
     Dates: start: 20131205

REACTIONS (2)
  - Blindness [Unknown]
  - Eye pain [Recovered/Resolved]
